FAERS Safety Report 9782373 (Version 4)
Quarter: 2014Q1

REPORT INFORMATION
  Report Type: Report from Study
  Country: AU (occurrence: AU)
  Receive Date: 20131226
  Receipt Date: 20140212
  Transmission Date: 20141002
  Serious: Yes (Death, Other)
  Sender: FDA-Public Use
  Company Number: PHHY2012AU129058

PATIENT
  Age: 64 Year
  Sex: Female
  Weight: 88.3 kg

DRUGS (3)
  1. ACLASTA [Suspect]
     Dosage: 5 MG
     Route: 042
     Dates: start: 20100318
  2. ACLASTA [Suspect]
     Dosage: 5 MG
     Route: 042
     Dates: start: 20110523
  3. ACLASTA [Suspect]
     Dosage: 5 MG
     Route: 042
     Dates: start: 20120921

REACTIONS (9)
  - Pulmonary embolism [Fatal]
  - Tachypnoea [Fatal]
  - Malaise [Fatal]
  - Haemoptysis [Fatal]
  - Radiation pneumonitis [Fatal]
  - Adenocarcinoma [Unknown]
  - Chest pain [Unknown]
  - Pleuritic pain [Unknown]
  - Dyspnoea [Unknown]
